FAERS Safety Report 8588607-1 (Version None)
Quarter: 2012Q3

REPORT INFORMATION
  Report Type: 
  Country: None (occurrence: None)
  Receive Date: 20120813
  Receipt Date: 20120516
  Transmission Date: 20120928
  Serious: Yes (Other)
  Sender: FDA-Public Use
  Company Number: US-PFIZER INC-2012061317

PATIENT
  Age: 58 Year
  Sex: Female
  Weight: 81.633 kg

DRUGS (8)
  1. FIORINAL [Concomitant]
     Indication: PAIN
     Dosage: UNK, AS NEEDED
  2. ALBUTEROL [Concomitant]
     Indication: ASTHMA
     Dosage: UNK, AS NEEDED
  3. LORAZEPAM [Concomitant]
     Indication: ANXIETY
     Dosage: 2 MG, AS NEEDED
  4. VITAMIN B-12 [Concomitant]
     Indication: URINARY TRACT DISORDER
     Dosage: UNK
  5. LYRICA [Suspect]
     Indication: NEUROPATHY PERIPHERAL
     Dosage: 50 MG, 1X/DAY
     Dates: start: 20120401, end: 20120401
  6. LYRICA [Suspect]
     Indication: FIBROMYALGIA
     Dosage: 50 MG, 2X/DAY
     Dates: start: 20120401
  7. LYRICA [Suspect]
     Indication: MYOPATHY
  8. FIORINAL [Concomitant]
     Indication: MIGRAINE

REACTIONS (21)
  - DIZZINESS [None]
  - ASTHENIA [None]
  - CRYING [None]
  - HEADACHE [None]
  - MYALGIA [None]
  - FIBROMYALGIA [None]
  - EYE SWELLING [None]
  - INSOMNIA [None]
  - ANXIETY [None]
  - JOINT SWELLING [None]
  - SOMNOLENCE [None]
  - OEDEMA PERIPHERAL [None]
  - HYPOTENSION [None]
  - DRUG INEFFECTIVE [None]
  - LACRIMATION INCREASED [None]
  - PAIN [None]
  - BEDRIDDEN [None]
  - VISION BLURRED [None]
  - DEPRESSION [None]
  - NEUROPATHY PERIPHERAL [None]
  - MIGRAINE [None]
